FAERS Safety Report 17922323 (Version 2)
Quarter: 2020Q2

REPORT INFORMATION
  Report Type: Spontaneous
  Country: US (occurrence: US)
  Receive Date: 20200622
  Receipt Date: 20200624
  Transmission Date: 20200714
  Serious: No
  Sender: FDA-Public Use
  Company Number: US-PFIZER INC-2020238112

PATIENT
  Sex: Female

DRUGS (2)
  1. METRONIDAZOLE. [Suspect]
     Active Substance: METRONIDAZOLE
     Dosage: 500 MG
  2. METRONIDAZOLE. [Suspect]
     Active Substance: METRONIDAZOLE
     Dosage: 1000 MG, DAILY (TWO PILLS DAILY FOR ONE WEEK)

REACTIONS (9)
  - Head discomfort [Unknown]
  - Feeling abnormal [Unknown]
  - Chills [Unknown]
  - Vertigo [Unknown]
  - Vomiting [Unknown]
  - Pyrexia [Unknown]
  - Abdominal discomfort [Unknown]
  - Diarrhoea [Unknown]
  - Malaise [Unknown]
